FAERS Safety Report 9893746 (Version 1)
Quarter: 2014Q1

REPORT INFORMATION
  Report Type: Report from Study
  Country: DK (occurrence: DE)
  Receive Date: 20140213
  Receipt Date: 20140213
  Transmission Date: 20141002
  Serious: Yes (Life-Threatening, Hospitalization, Other)
  Sender: FDA-Public Use
  Company Number: DE-FRI-1000054118

PATIENT
  Sex: Female

DRUGS (9)
  1. CITALOPRAM [Suspect]
     Dosage: 10 MG
     Route: 048
     Dates: start: 20060607, end: 20060610
  2. CITALOPRAM [Suspect]
     Dosage: 20 MG
     Route: 048
     Dates: start: 20060611, end: 20060614
  3. CITALOPRAM [Suspect]
     Dosage: 15 MG
     Route: 048
     Dates: start: 20060615, end: 20060725
  4. METOPROLOL [Suspect]
     Dosage: 47.5 MG
     Route: 048
     Dates: start: 20060601, end: 20060623
  5. QUILONUM RETARD [Suspect]
     Dosage: 225 MG
     Route: 048
     Dates: start: 20060712, end: 20060717
  6. QUILONUM RETARD [Suspect]
     Dosage: 450 MG
     Route: 048
     Dates: start: 20060718, end: 20060725
  7. TAVOR [Concomitant]
     Dosage: 2 MG
     Route: 048
     Dates: start: 20060606, end: 20060614
  8. TAVOR [Concomitant]
     Dosage: 1 MG
     Route: 048
     Dates: start: 20060615, end: 20060629
  9. TAVOR [Concomitant]
     Dosage: 0.5 MG
     Route: 048
     Dates: start: 20060630, end: 20060630

REACTIONS (5)
  - Sinus bradycardia [Recovered/Resolved]
  - Hypotension [Recovered/Resolved]
  - Dysarthria [Recovered/Resolved]
  - Altered state of consciousness [Recovered/Resolved]
  - Hypothyroidism [Recovered/Resolved]
